FAERS Safety Report 6604503-0 (Version None)
Quarter: 2010Q1

REPORT INFORMATION
  Report Type: 
  Country: None (occurrence: None)
  Receive Date: 20100226
  Receipt Date: 20091123
  Transmission Date: 20100710
  Serious: No
  Sender: FDA-Public Use
  Company Number: A0815072A

PATIENT
  Age: 38 Year
  Sex: Female
  Weight: 68.6 kg

DRUGS (2)
  1. LAMICTAL CD [Suspect]
     Indication: BIPOLAR DISORDER
     Dosage: 50MG PER DAY
     Route: 048
     Dates: start: 20091007, end: 20091029
  2. HYDROXYZINE [Concomitant]
     Dosage: 50MG AT NIGHT
     Route: 048

REACTIONS (2)
  - RASH [None]
  - RASH PAPULAR [None]
